FAERS Safety Report 6442889-0 (Version None)
Quarter: 2009Q4

REPORT INFORMATION
  Report Type: 
  Country: None (occurrence: None)
  Receive Date: 20091117
  Receipt Date: 20091103
  Transmission Date: 20100525
  Serious: Yes (Disabling, Other)
  Sender: FDA-Public Use
  Company Number: FR-BRISTOL-MYERS SQUIBB COMPANY-14858104

PATIENT
  Age: 49 Year
  Sex: Female

DRUGS (1)
  1. KENACORT [Suspect]
     Indication: KERATITIS
     Dates: start: 20060901, end: 20061101

REACTIONS (4)
  - BLINDNESS UNILATERAL [None]
  - INTRAOCULAR PRESSURE INCREASED [None]
  - MACULAR RUPTURE [None]
  - RETINAL DETACHMENT [None]
